FAERS Safety Report 7548466-2 (Version None)
Quarter: 2011Q2

REPORT INFORMATION
  Report Type: 
  Country: None (occurrence: None)
  Receive Date: 20110615
  Receipt Date: 20110610
  Transmission Date: 20111010
  Serious: Yes (Other)
  Sender: FDA-Public Use
  Company Number: FI-SANOFI-AVENTIS-2011SA036813

PATIENT
  Age: 83 Year
  Sex: Male

DRUGS (3)
  1. ENOXAPARIN SODIUM [Suspect]
     Route: 058
     Dates: end: 20110610
  2. WARFARIN SODIUM [Concomitant]
     Indication: ATRIAL FIBRILLATION
     Route: 048
  3. ENOXAPARIN SODIUM [Suspect]
     Route: 058
     Dates: start: 01000610

REACTIONS (4)
  - EXPIRED DRUG ADMINISTERED [None]
  - HYPOTENSION [None]
  - MALAISE [None]
  - LOSS OF CONSCIOUSNESS [None]
